FAERS Safety Report 4344568-2 (Version None)
Quarter: 2004Q1

REPORT INFORMATION
  Report Type: 
  Country: None (occurrence: None)
  Receive Date: 20040325
  Receipt Date: 20031208
  Transmission Date: 20041129
  Serious: No
  Sender: FDA-Public Use
  Company Number: USA031254200

PATIENT
  Age: 77 Year
  Sex: Female

DRUGS (11)
  1. FORTEO [Suspect]
     Indication: OSTEOPOROSIS
     Dosage: 20 UG/DAY
     Dates: start: 20031203
  2. LASIX [Concomitant]
  3. METOPROLOL [Concomitant]
  4. ISOSORBIDE [Concomitant]
  5. DENAPRIL (ENALAPRIL MALEATE) [Concomitant]
  6. PLAVIX [Concomitant]
  7. PREVACID [Concomitant]
  8. XANAX [Concomitant]
  9. BENTYL [Concomitant]
  10. KLOR-CON [Concomitant]
  11. CALTRATE (CALCIUM CARBONATE) [Concomitant]

REACTIONS (4)
  - HEART RATE INCREASED [None]
  - HYPERHIDROSIS [None]
  - OEDEMA PERIPHERAL [None]
  - URINE OUTPUT DECREASED [None]
